FAERS Safety Report 13823502 (Version 5)
Quarter: 2019Q1

REPORT INFORMATION
  Report Type: Report from Study
  Country: DE (occurrence: DE)
  Receive Date: 20170802
  Receipt Date: 20190212
  Transmission Date: 20190417
  Serious: Yes (Hospitalization, Other)
  Sender: FDA-Public Use
  Company Number: DE-ROCHE-1969667

PATIENT
  Age: 82 Year
  Sex: Male

DRUGS (6)
  1. AMLODIPIN [Concomitant]
     Active Substance: AMLODIPINE BESYLATE
  2. AKINETON [Concomitant]
     Active Substance: BIPERIDEN HYDROCHLORIDE
  3. RITUXIMAB. [Suspect]
     Active Substance: RITUXIMAB
     Indication: RHEUMATOID ARTHRITIS
     Route: 042
  4. ALLOPURINOL. [Concomitant]
     Active Substance: ALLOPURINOL
  5. LISINOPRIL. [Concomitant]
     Active Substance: LISINOPRIL
  6. DOXAZOSIN [Concomitant]
     Active Substance: DOXAZOSIN\DOXAZOSIN MESYLATE

REACTIONS (4)
  - Cough [Unknown]
  - Anaemia [Unknown]
  - Pneumonia [Unknown]
  - Myocardial infarction [Recovered/Resolved]

NARRATIVE: CASE EVENT DATE: 20161215
